FAERS Safety Report 5901547-9 (Version None)
Quarter: 2008Q3

REPORT INFORMATION
  Report Type: 
  Country: None (occurrence: None)
  Receive Date: 20080926
  Receipt Date: 20080926
  Transmission Date: 20090109
  Serious: Yes (Hospitalization)
  Sender: FDA-Public Use
  Company Number: None

PATIENT
  Sex: Female
  Weight: 82.7 kg

DRUGS (11)
  1. CISPLATIN [Suspect]
     Dosage: 96 MG
  2. DOXORUBICIN HYDROCHLORIDE [Suspect]
     Dosage: 86 MG
  3. TAXOL [Suspect]
     Dosage: 307 MG
  4. NEULASTA [Suspect]
     Dosage: 6 MG
  5. ATIVAN [Concomitant]
  6. LIPITOR [Concomitant]
  7. LISINOPRIL [Concomitant]
  8. LUTEIN [Concomitant]
  9. MULTI-VITAMIN [Concomitant]
  10. REGLAN [Concomitant]
  11. ZOFRAN [Concomitant]

REACTIONS (4)
  - DIARRHOEA [None]
  - NEUTROPHIL COUNT DECREASED [None]
  - VOMITING [None]
  - WHITE BLOOD CELL COUNT DECREASED [None]
